FAERS Safety Report 15781569 (Version 2)
Quarter: 2019Q1

REPORT INFORMATION
  Report Type: Spontaneous
  Country: US (occurrence: US)
  Receive Date: 20190102
  Receipt Date: 20190212
  Transmission Date: 20190417
  Serious: No
  Sender: FDA-Public Use
  Company Number: US-ASTRAZENECA-2018SF64459

PATIENT
  Age: 73 Year
  Sex: Female
  Weight: 81.6 kg

DRUGS (2)
  1. IPRATROPIUM BROMIDE. [Concomitant]
     Active Substance: IPRATROPIUM BROMIDE
     Indication: NASAL CONGESTION
     Dosage: 42.0UG AS REQUIRED
     Route: 045
  2. TUDORZA PRESSAIR [Suspect]
     Active Substance: ACLIDINIUM BROMIDE
     Indication: CHRONIC OBSTRUCTIVE PULMONARY DISEASE
     Route: 055

REACTIONS (7)
  - Visual impairment [Unknown]
  - Gait disturbance [Unknown]
  - Dysphonia [Unknown]
  - Device malfunction [Unknown]
  - Hypoacusis [Unknown]
  - Memory impairment [Unknown]
  - Dyspnoea [Unknown]

NARRATIVE: CASE EVENT DATE: 2017
